FAERS Safety Report 7483678-8 (Version None)
Quarter: 2011Q2

REPORT INFORMATION
  Report Type: 
  Country: None (occurrence: None)
  Receive Date: 20110501
  Receipt Date: 20110501
  Transmission Date: 20111010
  Serious: Yes (Hospitalization)
  Sender: FDA-Public Use
  Company Number: None

PATIENT
  Sex: Female
  Weight: 92.9 kg

DRUGS (3)
  1. DACARBAZINE [Suspect]
     Dosage: 780 MG
  2. DOXORUBICIN HYDROCHLORIDE [Suspect]
     Dosage: 52 MG
  3. VINBLASTINE SULFATE [Suspect]
     Dosage: 12.48 MG

REACTIONS (2)
  - PLEURITIC PAIN [None]
  - PULMONARY EMBOLISM [None]
